FAERS Safety Report 6115495-5 (Version None)
Quarter: 2009Q1

REPORT INFORMATION
  Report Type: 
  Country: None (occurrence: None)
  Receive Date: 20090313
  Receipt Date: 20090305
  Transmission Date: 20090719
  Serious: Yes (Death)
  Sender: FDA-Public Use
  Company Number: US-GENENTECH-278686

PATIENT
  Age: 33 Year
  Sex: Female

DRUGS (1)
  1. AVASTIN [Suspect]
     Indication: NON-SMALL CELL LUNG CANCER

REACTIONS (1)
  - DEATH [None]
